FAERS Safety Report 6580587-3 (Version None)
Quarter: 2010Q1

REPORT INFORMATION
  Report Type: 
  Country: None (occurrence: None)
  Receive Date: 20100212
  Receipt Date: 20100208
  Transmission Date: 20100710
  Serious: Yes (Death, Other)
  Sender: FDA-Public Use
  Company Number: PHHY2010US07142

PATIENT
  Sex: Male
  Weight: 72.562 kg

DRUGS (16)
  1. ZOMETA [Suspect]
     Dosage: 4 MG, QMO
     Route: 042
     Dates: start: 20061101, end: 20080601
  2. ZOMETA [Suspect]
     Dosage: 4 MG, QMO
     Route: 042
     Dates: start: 20081201, end: 20090901
  3. REVLIMID [Suspect]
     Indication: MULTIPLE MYELOMA
     Dosage: 25 MG (1 IN 1 DAY)
     Route: 048
     Dates: start: 20060130, end: 20080501
  4. REVLIMID [Suspect]
     Dosage: 10 MG (DAYS 1 TO 21 OF EACH MONTH)
     Route: 048
     Dates: start: 20090101, end: 20091001
  5. COUMADIN [Concomitant]
     Indication: ANTICOAGULANT THERAPY
     Dosage: 1 MG/2 MG ALTERNATING DOSE, DAILY
     Route: 047
  6. DECADRON [Concomitant]
     Dosage: 40 MG (DAYS 1,8, 15 AND 22)
     Dates: start: 20090201
  7. DOXORUBICIN HCL [Concomitant]
     Dosage: UNK
     Dates: start: 20071101, end: 20080501
  8. MS CONTIN [Concomitant]
     Dosage: 30 MG DAILY
     Route: 048
  9. DILAUDID [Concomitant]
     Dosage: 2 MG, Q4H
  10. DILAUDID [Concomitant]
     Dosage: 4 MG, PRN
  11. CITRACAL [Concomitant]
     Dosage: 3 TAB DAILY
  12. MIRALAX [Concomitant]
     Dosage: DAILY PRN
  13. FLOMAX [Concomitant]
     Dosage: 0.4 MG HS
  14. VITAMIN K TAB [Concomitant]
     Dosage: 1 MG, UNK
     Route: 048
     Dates: start: 20091019, end: 20091019
  15. FUROSEMIDE [Concomitant]
     Indication: OEDEMA PERIPHERAL
     Dosage: UNK
     Dates: start: 20091001
  16. BORTEZOMIB [Concomitant]

REACTIONS (9)
  - BACK PAIN [None]
  - GASTROINTESTINAL HAEMORRHAGE [None]
  - HAEMATEMESIS [None]
  - HAEMATOMA [None]
  - INTERNATIONAL NORMALISED RATIO INCREASED [None]
  - OSTEONECROSIS [None]
  - PLATELET COUNT DECREASED [None]
  - PROTHROMBIN TIME PROLONGED [None]
  - TOOTH EXTRACTION [None]
